FAERS Safety Report 4472995-1 (Version None)
Quarter: 2004Q4

REPORT INFORMATION
  Report Type: 
  Country: None (occurrence: None)
  Receive Date: 20041013
  Receipt Date: 20041004
  Transmission Date: 20050328
  Serious: Yes (Other)
  Sender: FDA-Public Use
  Company Number: US-MERCK-0410USA00441

PATIENT
  Age: 38 Year
  Sex: Male

DRUGS (2)
  1. VIOXX [Suspect]
     Indication: BACK PAIN
     Route: 048
     Dates: start: 20010101, end: 20040901
  2. VIOXX [Suspect]
     Route: 048
     Dates: start: 20040901

REACTIONS (3)
  - BACK DISORDER [None]
  - CARDIAC FAILURE [None]
  - MYOCARDIAL INFARCTION [None]
